FAERS Safety Report 7187099-7 (Version None)
Quarter: 2010Q4

REPORT INFORMATION
  Report Type: 
  Country: None (occurrence: None)
  Receive Date: 20101222
  Receipt Date: 20101215
  Transmission Date: 20110411
  Serious: Yes (Other)
  Sender: FDA-Public Use
  Company Number: US-ABBOTT-10P-163-0685543-00

PATIENT
  Sex: Female

DRUGS (2)
  1. LUPRON DEPOT [Suspect]
     Indication: ENDOMETRIOSIS
  2. BONE UP [Concomitant]
     Indication: BONE DENSITY DECREASED

REACTIONS (33)
  - ABDOMINAL ADHESIONS [None]
  - ABDOMINAL PAIN [None]
  - ABDOMINAL PAIN UPPER [None]
  - ACNE [None]
  - ALOPECIA [None]
  - ASTHENIA [None]
  - BONE DENSITY DECREASED [None]
  - BONE PAIN [None]
  - BURNING SENSATION [None]
  - CRYING [None]
  - DECREASED APPETITE [None]
  - DEPRESSED MOOD [None]
  - DRY MOUTH [None]
  - ENDOMETRIOSIS [None]
  - EYE IRRITATION [None]
  - FALLOPIAN TUBE DISORDER [None]
  - FATIGUE [None]
  - FEELING ABNORMAL [None]
  - HOT FLUSH [None]
  - HYPERHIDROSIS [None]
  - HYPOKINESIA [None]
  - ILL-DEFINED DISORDER [None]
  - INSOMNIA [None]
  - MUSCLE ATROPHY [None]
  - NAUSEA [None]
  - NEGATIVE THOUGHTS [None]
  - ORAL DISORDER [None]
  - OVARIAN DISORDER [None]
  - PAIN [None]
  - SKIN BURNING SENSATION [None]
  - THIRST [None]
  - VOMITING [None]
  - WEIGHT DECREASED [None]
